FAERS Safety Report 10065135 (Version 1)
Quarter: 2014Q2

REPORT INFORMATION
  Report Type: Spontaneous
  Country: US (occurrence: US)
  Receive Date: 20140408
  Receipt Date: 20140408
  Transmission Date: 20141212
  Serious: Yes (Hospitalization)
  Sender: FDA-Public Use
  Company Number: US-ALEXION PHARMACEUTICALS INC.-A201401165

PATIENT
  Sex: 0

DRUGS (3)
  1. SOLIRIS 300MG [Suspect]
     Indication: HAEMOLYTIC URAEMIC SYNDROME
     Dosage: UNK
     Route: 042
     Dates: start: 201311
  2. PREDNISONE [Concomitant]
     Indication: RENAL DISORDER
     Route: 065
  3. MYCOPHENOLATE MOFETIL SANDOZ [Concomitant]
     Indication: RENAL DISORDER
     Route: 065

REACTIONS (3)
  - Convulsion [Unknown]
  - Herpes zoster meningoencephalitis [Unknown]
  - Pulmonary haemorrhage [Recovered/Resolved]
